FAERS Safety Report 6994110 (Version 9)
Quarter: 2013Q1

REPORT INFORMATION
  Report Type: Spontaneous
  Country: US (occurrence: US)
  Receive Date: 20090514
  Receipt Date: 20130308
  Transmission Date: 20140127
  Serious: Yes (Hospitalization)
  Sender: FDA-Public Use
  Company Number: US-BIOGENIDEC-2008BI029405

PATIENT
  Age: 54 Year
  Sex: Male

DRUGS (3)
  1. TYSABRI [Suspect]
     Indication: MULTIPLE SCLEROSIS
     Route: 042
     Dates: start: 20061102, end: 20081002
  2. COREG [Concomitant]
     Indication: HYPERTENSION
  3. DILTIAZEM [Concomitant]
     Indication: HYPERTENSION

REACTIONS (20)
  - Cellulitis [Not Recovered/Not Resolved]
  - Oedema peripheral [Not Recovered/Not Resolved]
  - Weight increased [Not Recovered/Not Resolved]
  - Dermatitis [Not Recovered/Not Resolved]
  - Fall [Recovered/Resolved]
  - Swelling [Recovered/Resolved]
  - Lymphoedema [Unknown]
  - Local swelling [Recovered/Resolved]
  - Pain in extremity [Recovered/Resolved]
  - Skin exfoliation [Not Recovered/Not Resolved]
  - Skin haemorrhage [Not Recovered/Not Resolved]
  - Skin fissures [Not Recovered/Not Resolved]
  - Laceration [Not Recovered/Not Resolved]
  - Insomnia [Not Recovered/Not Resolved]
  - Balance disorder [Not Recovered/Not Resolved]
  - Influenza like illness [Not Recovered/Not Resolved]
  - Gait disturbance [Not Recovered/Not Resolved]
  - Mobility decreased [Not Recovered/Not Resolved]
  - Fatigue [Not Recovered/Not Resolved]
  - Pericardial calcification [Unknown]
